FAERS Safety Report 7508852-3 (Version None)
Quarter: 2011Q2

REPORT INFORMATION
  Report Type: 
  Country: None (occurrence: None)
  Receive Date: 20110527
  Receipt Date: 20110520
  Transmission Date: 20111010
  Serious: Yes (Death, Hospitalization)
  Sender: FDA-Public Use
  Company Number: PHHY2011AR00771

PATIENT
  Sex: Female

DRUGS (1)
  1. DIOVAN [Suspect]
     Indication: HYPERTENSION
     Dosage: 80 MG DAILY

REACTIONS (3)
  - HEMIPLEGIA [None]
  - VIRAL INFECTION [None]
  - CEREBROVASCULAR ACCIDENT [None]
